FAERS Safety Report 9117102 (Version 1)
Quarter: 2013Q1

REPORT INFORMATION
  Report Type: Spontaneous
  Country: DE (occurrence: DE)
  Receive Date: 20130225
  Receipt Date: 20130225
  Transmission Date: 20140127
  Serious: Yes (Disabling)
  Sender: FDA-Public Use
  Company Number: DE-ACCORD-016603

PATIENT
  Age: 71 Year
  Sex: Female

DRUGS (1)
  1. MITOMYCIN [Suspect]
     Indication: CONJUNCTIVAL MELANOMA
     Dosage: 3 CYCLES TWICE

REACTIONS (2)
  - Corneal erosion [Unknown]
  - Limbal stem cell deficiency [Unknown]
